FAERS Safety Report 7346354-8 (Version None)
Quarter: 2011Q1

REPORT INFORMATION
  Report Type: 
  Country: None (occurrence: None)
  Receive Date: 20110311
  Receipt Date: 20110301
  Transmission Date: 20110831
  Serious: Yes (Death)
  Sender: FDA-Public Use
  Company Number: US-CELGENEUS-163-21880-11030420

PATIENT
  Sex: Female

DRUGS (11)
  1. AMRIX [Concomitant]
     Route: 065
  2. GLIPIZIDE [Concomitant]
     Route: 065
  3. WARFARIN [Concomitant]
     Route: 065
  4. REVLIMID [Suspect]
     Indication: MULTIPLE MYELOMA
     Dosage: 25 MILLIGRAM
     Route: 048
     Dates: start: 20100201
  5. NEXIUM [Concomitant]
     Route: 065
  6. ATENOLOL [Concomitant]
     Route: 065
  7. VELCADE [Concomitant]
     Route: 065
  8. POTASSIUM [Concomitant]
     Route: 065
  9. PRAMIPEXOLE [Concomitant]
     Route: 065
  10. LISINOPRIL [Concomitant]
     Route: 065
  11. DEXAMETHASONE [Concomitant]
     Route: 065

REACTIONS (4)
  - DEATH [None]
  - DIARRHOEA [None]
  - VOMITING [None]
  - MUSCLE SPASMS [None]
